FAERS Safety Report 9339153 (Version 1)
Quarter: 2013Q2

REPORT INFORMATION
  Report Type: Spontaneous
  Country: FR (occurrence: FR)
  Receive Date: 20130610
  Receipt Date: 20130610
  Transmission Date: 20140414
  Serious: Yes (Disabling, Other)
  Sender: FDA-Public Use
  Company Number: FR-PFIZER INC-2013170542

PATIENT
  Age: 79 Year
  Sex: Male

DRUGS (17)
  1. LYRICA [Suspect]
     Dosage: 75 MG DAILY
     Route: 048
     Dates: start: 20130402, end: 20130407
  2. LYRICA [Suspect]
     Dosage: 150 MG DAILY
     Route: 048
     Dates: start: 20130408, end: 20130411
  3. MIRTAZAPINE [Suspect]
     Indication: TREMOR
     Dosage: 15 MG DAILY
     Dates: start: 20130321, end: 20130406
  4. MIRTAZAPINE [Suspect]
     Dosage: 30 MG DAILY
     Dates: start: 20130407, end: 20130410
  5. CORDARONE [Concomitant]
     Dosage: 1 DF, 5 DAYS OUT OF 7
     Dates: start: 201104
  6. DEPAKINE CHRONO [Concomitant]
     Dosage: 2 DF, DAILY
     Dates: end: 20130306
  7. DEPAKINE CHRONO [Concomitant]
     Dosage: UNK
     Dates: start: 20130329
  8. GABAPENTIN [Concomitant]
     Dosage: 300 MG DAILY
     Dates: start: 20130304, end: 20130312
  9. GABAPENTIN [Concomitant]
     Dosage: 600 MG DAILY
     Dates: start: 20130313, end: 20130329
  10. PLAVIX [Concomitant]
     Dosage: 1 DF, DAILY
  11. INEXIUM [Concomitant]
     Dosage: 1 DF, DAILY
  12. LASILIX [Concomitant]
     Dosage: 40 MG, 2X/DAY
  13. ZITHROMAX [Concomitant]
     Dosage: 1 DF, DAILY
  14. SYMBICORT [Concomitant]
     Dosage: TWICE DAILY
  15. NOVONORM [Concomitant]
     Dosage: 0.5 UNK, 3X/DAY
     Dates: start: 201212
  16. LEVOTHYROX [Concomitant]
     Dosage: 25 UG, DAILY
     Dates: start: 201212
  17. LANTUS [Concomitant]
     Dosage: 16 IU, DAILY

REACTIONS (5)
  - Tremor [Recovering/Resolving]
  - Condition aggravated [Recovering/Resolving]
  - Cerebral atrophy [Unknown]
  - Lacunar infarction [Unknown]
  - Cerebral disorder [Unknown]
